FAERS Safety Report 23123608 (Version 1)
Quarter: 2023Q4

REPORT INFORMATION
  Report Type: Spontaneous
  Country: US (occurrence: US)
  Receive Date: 20231030
  Receipt Date: 20231030
  Transmission Date: 20240110
  Serious: Yes (Hospitalization, Other)
  Sender: FDA-Public Use
  Company Number: US-NOVOPROD-1131444

PATIENT
  Age: 83 Year
  Sex: Male

DRUGS (1)
  1. LEVEMIR [Suspect]
     Active Substance: INSULIN DETEMIR
     Indication: Type 2 diabetes mellitus
     Dosage: 25 IU, BID
     Route: 058
     Dates: start: 2012

REACTIONS (7)
  - Loss of consciousness [Recovered/Resolved]
  - COVID-19 pneumonia [Recovered/Resolved]
  - Transient ischaemic attack [Not Recovered/Not Resolved]
  - Vertigo [Recovered/Resolved]
  - Eye injury [Recovered/Resolved]
  - Fall [Recovered/Resolved]
  - Muscular weakness [Not Recovered/Not Resolved]

NARRATIVE: CASE EVENT DATE: 20210201
